FAERS Safety Report 18180371 (Version 1)
Quarter: 2020Q3

REPORT INFORMATION
  Report Type: Report from Study
  Country: None (occurrence: NZ)
  Receive Date: 20200821
  Receipt Date: 20200821
  Transmission Date: 20201103
  Serious: Yes (Hospitalization)
  Sender: FDA-Public Use
  Company Number: NZ-ABBVIE-20K-118-3507018-00

PATIENT
  Age: 40 Year
  Sex: Female

DRUGS (2)
  1. HUMIRA [Suspect]
     Active Substance: ADALIMUMAB
     Indication: CROHN^S DISEASE
     Dosage: LOADING DOSE
     Route: 058
     Dates: start: 20200730, end: 20200730
  2. HUMIRA [Suspect]
     Active Substance: ADALIMUMAB
     Route: 058
     Dates: start: 2020

REACTIONS (11)
  - Dizziness [Unknown]
  - Feeling abnormal [Unknown]
  - Gastrointestinal pain [Unknown]
  - Fatigue [Unknown]
  - Unevaluable event [Unknown]
  - Nausea [Unknown]
  - Pain [Unknown]
  - Migraine [Unknown]
  - Diarrhoea [Unknown]
  - Abdominal discomfort [Unknown]
  - Injection site pain [Unknown]

NARRATIVE: CASE EVENT DATE: 20200730
